FAERS Safety Report 7382603-8 (Version None)
Quarter: 2011Q1

REPORT INFORMATION
  Report Type: 
  Country: None (occurrence: None)
  Receive Date: 20110329
  Receipt Date: 20110314
  Transmission Date: 20110831
  Serious: Yes (Hospitalization, Other)
  Sender: FDA-Public Use
  Company Number: US-BAYER-201034793NA

PATIENT
  Sex: Female
  Weight: 65.76 kg

DRUGS (11)
  1. SERTRALINE HYDROCHLORIDE [Concomitant]
     Dosage: 100 MG, UNK
  2. ADDERALL 10 [Concomitant]
  3. UNCODEABLE ^UNCLASSIFIABLE^ [Concomitant]
     Dosage: 30 MG, UNK
  4. FLUCONAZOLE [Concomitant]
  5. IBUPROFEN [Concomitant]
     Dosage: 800 MG, UNK
  6. YASMIN [Suspect]
     Dosage: UNK
     Route: 048
     Dates: start: 20070101, end: 20070101
  7. AZITHROMYCIN [Concomitant]
  8. YAZ [Suspect]
     Indication: MENSTRUAL CYCLE MANAGEMENT
     Dosage: UNK UNK, QD
     Route: 048
  9. CETIRIZINE HYDROCHLORIDE [Concomitant]
     Dosage: 10 MG, UNK
  10. CIPROFLOXACIN [Concomitant]
  11. OLOPATADINE [Concomitant]

REACTIONS (1)
  - THROMBOSIS [None]
